FAERS Safety Report 10339597 (Version 1)
Quarter: 2014Q3

REPORT INFORMATION
  Report Type: Spontaneous
  Country: FR (occurrence: FR)
  Receive Date: 20140724
  Receipt Date: 20140724
  Transmission Date: 20150326
  Serious: Yes (Hospitalization, Other)
  Sender: FDA-Public Use
  Company Number: FR-ASTRAZENECA-2014SE51864

PATIENT
  Age: 4 Year
  Sex: Female
  Weight: 15 kg

DRUGS (31)
  1. PARACETAMOL [Suspect]
     Active Substance: ACETAMINOPHEN
     Indication: HAND-FOOT-AND-MOUTH DISEASE
     Dosage: 15 MG/KG/6 TIMES A DAY
     Route: 048
     Dates: start: 20140603
  2. AMPHOTERICINE [Concomitant]
     Active Substance: AMPHOTERICIN B
     Dates: start: 20140607
  3. BACTROBAN [Concomitant]
     Active Substance: MUPIROCIN\MUPIROCIN CALCIUM
     Dosage: ONCE DAILY
     Route: 045
     Dates: start: 20140606
  4. CHIBROCADRON [Concomitant]
     Active Substance: DEXAMETHASONE SODIUM PHOSPHATE\NEOMYCIN SULFATE
     Dates: start: 20140606
  5. SONDALIS HP [Concomitant]
     Dosage: FIBERS 1200 ML 6 TIMES A DAY
     Dates: start: 20140608
  6. SODIUM BICARBONATE. [Concomitant]
     Active Substance: SODIUM BICARBONATE
     Dates: start: 20140607
  7. JELONET [Concomitant]
     Dosage: FACE
     Dates: start: 20140605
  8. NALBUPHINE [Concomitant]
     Active Substance: NALBUPHINE
     Dates: start: 20140607, end: 20140610
  9. MOPRAL [Suspect]
     Active Substance: OMEPRAZOLE SODIUM
     Route: 048
     Dates: start: 20140606
  10. ADVIL [Concomitant]
     Active Substance: IBUPROFEN
     Dosage: ONE DOSE
     Dates: start: 20140602, end: 20140602
  11. PAROEX [Concomitant]
     Active Substance: CHLORHEXIDINE GLUCONATE
     Dosage: MOUTH WASH
     Dates: start: 20140605
  12. AQUACEL [Concomitant]
     Dosage: FOAM (CUTANEOUS)
     Dates: start: 20140605
  13. AQUACEL [Concomitant]
     Dosage: VULVA
     Dates: start: 20140605
  14. POLYIONIC G5 [Concomitant]
     Dates: start: 20140605, end: 20140609
  15. NUTRINI [Concomitant]
     Dosage: ENTERIC NUTRITION AE , 24 HOURS/24 HOURS
  16. PARACETAMOL [Suspect]
     Active Substance: ACETAMINOPHEN
     Indication: HAND-FOOT-AND-MOUTH DISEASE
     Dosage: 4 TIMES A DAY
     Route: 048
     Dates: start: 20140610
  17. PRIMALAN [Concomitant]
     Active Substance: MEQUITAZINE
  18. JOSACINE [Concomitant]
     Active Substance: JOSAMYCIN
     Dates: start: 20140605
  19. MORPHINE [Concomitant]
     Active Substance: MORPHINE
     Dates: start: 20140605, end: 20140607
  20. HYPNOVEL [Concomitant]
     Active Substance: MIDAZOLAM\MIDAZOLAM HYDROCHLORIDE
     Dosage: 1-2 TIMES DAILY DURING CARES
     Dates: start: 20140606, end: 20140610
  21. KETAMINE [Concomitant]
     Active Substance: KETAMINE
     Dosage: 1-2 TIMES DAILY DURING CARES
     Dates: start: 20140606, end: 20140610
  22. MEOPA [Concomitant]
     Dates: start: 20140611
  23. ZECLAR [Suspect]
     Active Substance: CLARITHROMYCIN
     Dates: start: 20140606
  24. DESLORATADINE. [Concomitant]
     Active Substance: DESLORATADINE
     Indication: HAND-FOOT-AND-MOUTH DISEASE
     Dates: start: 20140603
  25. NUBAIN [Concomitant]
     Active Substance: NALBUPHINE HYDROCHLORIDE
  26. VITAMIN A [Concomitant]
     Active Substance: VITAMIN A
     Dosage: ON LIPS AND OPHTHALMIC UNGUENT
     Dates: start: 20140605
  27. LIDOCAINE. [Suspect]
     Active Substance: LIDOCAINE
     Dosage: COATING MOUTH WASH
     Dates: start: 20140607
  28. AUGMENTIN [Suspect]
     Active Substance: AMOXICILLIN\CLAVULANATE POTASSIUM
     Dates: start: 20140604, end: 20140611
  29. IBUPROFENE [Concomitant]
     Active Substance: IBUPROFEN
     Indication: HAND-FOOT-AND-MOUTH DISEASE
     Dates: start: 20140603
  30. FLUORESCEINE [Concomitant]
     Active Substance: FLUORESCEIN SODIUM
     Dosage: BIDAILY ON THE WHOLE BODY
     Dates: start: 20140605, end: 20140611
  31. FORLAX [Concomitant]
     Active Substance: POLYETHYLENE GLYCOL 4000
     Dosage: 120 MG AT MIDDAY, FOR 15 DAYS
     Route: 045
     Dates: start: 20140606

REACTIONS (4)
  - Metabolic acidosis [Unknown]
  - Hepatitis cholestatic [Recovering/Resolving]
  - Hyponatraemia [Unknown]
  - Off label use [Unknown]

NARRATIVE: CASE EVENT DATE: 20140604
